FAERS Safety Report 8818255 (Version 1)
Quarter: 2012Q4

REPORT INFORMATION
  Report Type: 
  Country: FR (occurrence: FR)
  Receive Date: 20121001
  Receipt Date: 20121001
  Transmission Date: 20130627
  Serious: Yes (Other)
  Sender: FDA-Public Use
  Company Number: FR-GLAXOSMITHKLINE-B0831943A

PATIENT
  Sex: Male

DRUGS (4)
  1. AVAMYS [Suspect]
     Indication: RHINITIS ALLERGIC
     Dosage: 51MCG Per day
     Route: 045
  2. IZILOX [Suspect]
     Indication: SUPERINFECTION
     Dosage: 1TAB At night
     Route: 048
     Dates: start: 20091027, end: 20091102
  3. CELESTAMINE [Suspect]
     Indication: SUPERINFECTION
     Dosage: 2TAB Twice per day
     Route: 048
     Dates: start: 20091027, end: 20091031
  4. ZADITEN [Concomitant]
     Indication: SUPERINFECTION
     Dosage: 1TAB At night
     Route: 048
     Dates: start: 20091027

REACTIONS (2)
  - Tendon disorder [Not Recovered/Not Resolved]
  - Tendon pain [Not Recovered/Not Resolved]
